FAERS Safety Report 7387721-6 (Version None)
Quarter: 2011Q1

REPORT INFORMATION
  Report Type: 
  Country: None (occurrence: None)
  Receive Date: 20110331
  Receipt Date: 20110325
  Transmission Date: 20110831
  Serious: Yes (Other)
  Sender: FDA-Public Use
  Company Number: US-GENZYME-FLUD-1000933

PATIENT
  Age: 66 Year

DRUGS (6)
  1. BUSULFAN [Suspect]
     Indication: MYELOFIBROSIS
     Dosage: UNK
     Route: 065
  2. FLUDARA [Suspect]
     Indication: STEM CELL TRANSPLANT
  3. METHOTREXATE [Concomitant]
     Indication: PROPHYLAXIS AGAINST GRAFT VERSUS HOST DISEASE
     Route: 065
  4. FLUDARA [Suspect]
     Indication: MYELOFIBROSIS
     Dosage: UNK
     Route: 065
  5. TACROLIMUS [Concomitant]
     Indication: PROPHYLAXIS AGAINST GRAFT VERSUS HOST DISEASE
     Route: 065
  6. BUSULFAN [Suspect]
     Indication: STEM CELL TRANSPLANT

REACTIONS (1)
  - CHRONIC GRAFT VERSUS HOST DISEASE [None]
